FAERS Safety Report 7688319 (Version 3)
Quarter: 2013Q3

REPORT INFORMATION
  Report Type: Report from Study
  Country: PL (occurrence: PL)
  Receive Date: 20101201
  Receipt Date: 20130710
  Transmission Date: 20140515
  Serious: Yes (Death, Life-Threatening, Hospitalization)
  Sender: FDA-Public Use
  Company Number: PL-ELI_LILLY_AND_COMPANY-PL201011005767

PATIENT
  Age: 50 Year
  Sex: Female
  Weight: 63 kg

DRUGS (10)
  1. NECITUMUMAB (11F8) (LY3012211) [Suspect]
     Indication: NON-SMALL CELL LUNG CANCER
     Dosage: 800 MG, UNK
     Dates: start: 20101108
  2. GEMCITABINE HYDROCHLORIDE [Suspect]
     Indication: NON-SMALL CELL LUNG CANCER
     Dosage: 2125 MG, UNK
     Dates: start: 20101108
  3. CISPLATIN [Suspect]
     Indication: NON-SMALL CELL LUNG CANCER
     Dosage: 128 MG, UNK
     Dates: start: 20101108
  4. MORPHINE [Concomitant]
     Dates: start: 20101115
  5. FUROSEMID [Concomitant]
     Dates: start: 20101116
  6. NEUPOGEN [Concomitant]
     Dates: start: 20101115
  7. LEVONOR [Concomitant]
     Dates: start: 20101115
  8. CYCLONAMINE [Concomitant]
     Dates: start: 20101115
  9. BIOFUROKSYM [Concomitant]
  10. DEXAVEN [Concomitant]

REACTIONS (1)
  - General physical health deterioration [Fatal]
